FAERS Safety Report 10788094 (Version 2)
Quarter: 2015Q1

REPORT INFORMATION
  Report Type: Report from Study
  Country: US (occurrence: US)
  Receive Date: 20150212
  Receipt Date: 20150306
  Transmission Date: 20150721
  Serious: Yes (Hospitalization)
  Sender: FDA-Public Use
  Company Number: US-JNJFOC-20150207781

PATIENT
  Age: 54 Year
  Sex: Male
  Weight: 135 kg

DRUGS (25)
  1. BRIMONIDINE TARTRATE. [Concomitant]
     Active Substance: BRIMONIDINE TARTRATE
     Route: 047
  2. FLUOXETINE HYDROCHLORIDE. [Concomitant]
     Active Substance: FLUOXETINE HYDROCHLORIDE
     Route: 048
  3. PANTOPRAZOLE SODIUM [Concomitant]
     Active Substance: PANTOPRAZOLE SODIUM
     Route: 048
  4. SULFAMETHOXAZOLE-TRIMETHOPRIM (SMZ) [Concomitant]
     Active Substance: SULFAMETHOXAZOLE\TRIMETHOPRIM
     Route: 048
  5. IMBRUVICA [Suspect]
     Active Substance: IBRUTINIB
     Indication: CHRONIC LYMPHOCYTIC LEUKAEMIA
     Route: 048
     Dates: start: 20140806
  6. ALREX [Concomitant]
     Active Substance: LOTEPREDNOL ETABONATE
     Dosage: 1 DROP OF 0.2% SUSPENSION
     Route: 047
  7. HUMALOG [Concomitant]
     Active Substance: INSULIN LISPRO
     Dosage: FOUR TIMES A DAY PRN
  8. LANTUS [Concomitant]
     Active Substance: INSULIN GLARGINE
     Dosage: 25 UNITS DAILY
     Route: 058
  9. LANTUS SOLOSTAR [Concomitant]
     Active Substance: INSULIN GLARGINE
     Dosage: 21 UNITS AT BEDTIME
     Route: 058
  10. FLUTICASONE PROPIONATE / SALMETEROL [Concomitant]
     Dosage: 1 PIFF OF 100/50 AEROSOL POWDER BREATH ACTIVATED INHALATION
     Route: 055
  11. BACITRACIN OINTMENT [Concomitant]
     Dosage: FOR 14 DAYS
     Route: 061
  12. FUROSEMIDE. [Concomitant]
     Active Substance: FUROSEMIDE
     Route: 048
  13. ALLOPURINOL. [Concomitant]
     Active Substance: ALLOPURINOL
     Route: 048
     Dates: start: 20130417
  14. RENAGEL [Concomitant]
     Active Substance: SEVELAMER HYDROCHLORIDE
     Dosage: AC
     Route: 048
  15. LATANOPROST. [Concomitant]
     Active Substance: LATANOPROST
     Dosage: 1 DROP OF 0.005% SOLUTION DAILY
     Route: 047
  16. METHYLPHENIDATE HYDROCHLORIDE. [Concomitant]
     Active Substance: METHYLPHENIDATE HYDROCHLORIDE
     Route: 048
  17. AMLODIPINE BESYLATE. [Concomitant]
     Active Substance: AMLODIPINE BESYLATE
     Route: 048
  18. FENOFIBRATE. [Concomitant]
     Active Substance: FENOFIBRATE
     Route: 048
  19. HYDROCODONE BITARTRATE AND ACETAMINOPHEN [Concomitant]
     Active Substance: ACETAMINOPHEN\HYDROCODONE BITARTRATE
     Dosage: 2 (5-300 MG), EVERY 6 HOURS PRN
     Route: 048
     Dates: start: 20090320
  20. NEURONTIN [Concomitant]
     Active Substance: GABAPENTIN
     Route: 048
  21. CLONAZEPAM. [Concomitant]
     Active Substance: CLONAZEPAM
     Dosage: QHS
     Route: 048
  22. DIPHENOXYLATE HYDROCHLORIDE; ATROPINE SULFATE [Concomitant]
     Dosage: 5-300MG, FOUR TIMES A DAY PRN
     Route: 048
  23. FLUTICASONE PROPIONATE. [Concomitant]
     Active Substance: FLUTICASONE PROPIONATE
     Dosage: 2 SPRAYS OF 0.05 G SUSPENSION, DAILY
     Route: 045
  24. HYDROMORPHONE HYDROCHLORIDE. [Concomitant]
     Active Substance: HYDROMORPHONE HYDROCHLORIDE
     Dosage: EVERY 4 HOURS PRN
     Route: 048
  25. LASTACAFT [Concomitant]
     Active Substance: ALCAFTADINE
     Dosage: 1 DROP OF 0.025% SOLUTION B.I.D
     Route: 047

REACTIONS (9)
  - Contusion [Unknown]
  - Weight decreased [Unknown]
  - Fall [Unknown]
  - Pneumonia [Recovering/Resolving]
  - Insomnia [Unknown]
  - Clostridium difficile colitis [Recovering/Resolving]
  - Cellulitis [Recovering/Resolving]
  - Decreased appetite [Unknown]
  - Seizure [Unknown]

NARRATIVE: CASE EVENT DATE: 2014
